FAERS Safety Report 23099675 (Version 1)
Quarter: 2023Q4

REPORT INFORMATION
  Report Type: Spontaneous
  Country: US (occurrence: None)
  Receive Date: 20231023
  Receipt Date: 20231023
  Transmission Date: 20240110
  Serious: Yes (Death, Congenital Anomaly)
  Sender: FDA-Public Use
  Company Number: None

PATIENT
  Age: 18 Year
  Sex: Female
  Weight: 81.65 kg

DRUGS (1)
  1. OZEMPIC [Suspect]
     Active Substance: SEMAGLUTIDE
     Indication: Diabetes mellitus
     Dosage: FREQUENCY : WEEKLY;?
     Route: 058
     Dates: start: 20220501, end: 20230501

REACTIONS (4)
  - Stillbirth [None]
  - Placental insufficiency [None]
  - Foetal growth abnormality [None]
  - Congenital anomaly [None]

NARRATIVE: CASE EVENT DATE: 20231020
